FAERS Safety Report 9081921 (Version 3)
Quarter: 2013Q2

REPORT INFORMATION
  Report Type: Spontaneous
  Country: US (occurrence: US)
  Receive Date: 20130131
  Receipt Date: 20130403
  Transmission Date: 20140414
  Serious: No
  Sender: FDA-Public Use
  Company Number: US-009507513-1301USA012916

PATIENT
  Age: 57 Year
  Sex: Male
  Weight: 72.56 kg

DRUGS (10)
  1. VICTRELIS [Suspect]
     Dosage: 800 MG, TID
     Route: 048
     Dates: start: 20130114
  2. RIBAVIRIN [Suspect]
     Route: 048
  3. PEGASYS PROCLICK [Suspect]
  4. AMLODIPINE [Concomitant]
     Route: 048
  5. ALLEGRA [Concomitant]
     Route: 048
  6. PRILOSEC [Concomitant]
     Route: 048
  7. POTASSIUM (UNSPECIFIED) [Concomitant]
     Route: 048
  8. GLUCOS/CHON [Concomitant]
     Route: 048
  9. ALEVE [Concomitant]
     Route: 048
  10. TYLENOL [Concomitant]

REACTIONS (9)
  - Dysgeusia [Unknown]
  - Rash [Unknown]
  - Fatigue [Unknown]
  - Influenza like illness [Unknown]
  - Weight decreased [Unknown]
  - Depression [Unknown]
  - Lacrimation increased [Unknown]
  - Rash [Unknown]
  - White blood cell count decreased [Unknown]
